FAERS Safety Report 8716426 (Version 2)
Quarter: 2013Q4

REPORT INFORMATION
  Report Type: Spontaneous
  Country: US (occurrence: US)
  Receive Date: 20120810
  Receipt Date: 20131101
  Transmission Date: 20140711
  Serious: No
  Sender: FDA-Public Use
  Company Number: US-009507513-1207USA009981

PATIENT
  Age: 61 Year
  Sex: Male

DRUGS (4)
  1. VICTRELIS [Suspect]
     Indication: HEPATITIS C
     Dosage: 800 MG, THREE TIMES A DAY
     Route: 048
     Dates: start: 20120607
  2. PEGASYS [Suspect]
     Dosage: UNK
  3. RIBASPHERE [Suspect]
     Dosage: UNK
  4. PROMACTA [Concomitant]
     Dosage: UNK

REACTIONS (3)
  - Memory impairment [Unknown]
  - Asthenia [Unknown]
  - Dysgeusia [Unknown]
